FAERS Safety Report 4429634-5 (Version None)
Quarter: 2004Q3

REPORT INFORMATION
  Report Type: 
  Country: None (occurrence: None)
  Receive Date: 20040816
  Receipt Date: 20040803
  Transmission Date: 20050211
  Serious: Yes (Hospitalization)
  Sender: FDA-Public Use
  Company Number: 2004052899

PATIENT
  Age: 70 Year
  Sex: Female
  Weight: 66.6788 kg

DRUGS (6)
  1. ROGAINE [Suspect]
     Indication: ALOPECIA
     Dosage: 4 SPRAYS (0.67 ML) TWICE A DAY, TOPICAL
     Route: 061
     Dates: start: 19910101
  2. TELMISARTAN (TELMISARTAN) [Concomitant]
  3. PROPRANOLOL HYDROCHLORIDE (PROPRANOLOL HYDROCHLORIDE) [Concomitant]
  4. METOCLOPRAMIDE [Concomitant]
  5. DIURETICS (DIURETICS) [Concomitant]
  6. DOXAZOSIN MESYLATE [Concomitant]

REACTIONS (7)
  - ANAEMIA [None]
  - BRAIN NEOPLASM [None]
  - GASTROINTESTINAL CARCINOMA [None]
  - GASTROINTESTINAL HAEMORRHAGE [None]
  - HEADACHE [None]
  - HYPOAESTHESIA [None]
  - STRESS SYMPTOMS [None]
